FAERS Safety Report 10834602 (Version 1)
Quarter: 2015Q1

REPORT INFORMATION
  Report Type: Report from Study
  Country: US (occurrence: US)
  Receive Date: 20150219
  Receipt Date: 20150219
  Transmission Date: 20150721
  Serious: No
  Sender: FDA-Public Use
  Company Number: US-ABBVIE-14P-163-1205825-00

PATIENT
  Age: 19 Year
  Sex: Female

DRUGS (9)
  1. SLOW IRON [Concomitant]
     Indication: HAEMOGLOBIN DECREASED
  2. SLOW IRON [Concomitant]
     Indication: HAEMATOCRIT DECREASED
     Route: 048
  3. HUMIRA [Suspect]
     Active Substance: ADALIMUMAB
     Indication: PSORIASIS
     Dates: start: 201310
  4. SULFASALAZINE. [Concomitant]
     Active Substance: SULFASALAZINE
     Indication: ARTHRALGIA
     Route: 048
  5. FOLIC ACID. [Concomitant]
     Active Substance: FOLIC ACID
     Indication: VITAMIN SUPPLEMENTATION
     Route: 048
  6. VITAMIN B12 [Concomitant]
     Active Substance: CYANOCOBALAMIN
     Indication: VITAMIN B12 DEFICIENCY
     Route: 048
  7. VOLTAREN [Concomitant]
     Active Substance: DICLOFENAC SODIUM
     Indication: ARTHRALGIA
     Dosage: APPLIED TO JOINTS, MOSTLY AT BEDTIME TO HELP HER SLEEP
  8. VITAMIN D [Concomitant]
     Active Substance: CHOLECALCIFEROL
     Indication: VITAMIN D DEFICIENCY
  9. TRAMADOL [Concomitant]
     Active Substance: TRAMADOL
     Indication: ARTHRALGIA
     Route: 048

REACTIONS (6)
  - Psoriasis [Not Recovered/Not Resolved]
  - Wrong technique in drug usage process [Unknown]
  - Incorrect dose administered [Not Recovered/Not Resolved]
  - Arthralgia [Not Recovered/Not Resolved]
  - Device issue [Unknown]
  - Hypoaesthesia [Not Recovered/Not Resolved]

NARRATIVE: CASE EVENT DATE: 201402
